FAERS Safety Report 5995441-5 (Version None)
Quarter: 2008Q4

REPORT INFORMATION
  Report Type: 
  Country: None (occurrence: None)
  Receive Date: 20081212
  Receipt Date: 20081006
  Transmission Date: 20090506
  Serious: No
  Sender: FDA-Public Use
  Company Number: US-ABBOTT-08P-163-0478884-00

PATIENT
  Sex: Female
  Weight: 46.762 kg

DRUGS (2)
  1. HUMIRA [Suspect]
     Indication: CROHN'S DISEASE
     Route: 050
     Dates: start: 20080401
  2. NOVA RING [Concomitant]
     Indication: CONTRACEPTION

REACTIONS (5)
  - ABDOMINAL PAIN UPPER [None]
  - CROHN'S DISEASE [None]
  - DRUG INEFFECTIVE [None]
  - PAIN [None]
  - PROCEDURAL COMPLICATION [None]
